FAERS Safety Report 8166052-0 (Version None)
Quarter: 2012Q1

REPORT INFORMATION
  Report Type: 
  Country: None (occurrence: None)
  Receive Date: 20120227
  Receipt Date: 20110427
  Transmission Date: 20120608
  Serious: No
  Sender: FDA-Public Use
  Company Number: US-MYLANLABS-2011S1004145

PATIENT
  Age: 21 Year
  Sex: Female
  Weight: 49.9 kg

DRUGS (2)
  1. AMNESTEEM [Suspect]
     Indication: ACNE
     Dates: start: 20101018, end: 20110218
  2. STEROIDS [Suspect]
     Route: 030

REACTIONS (4)
  - DYSPNOEA [None]
  - LIPOATROPHY [None]
  - BACK PAIN [None]
  - ALOPECIA [None]
